FAERS Safety Report 9743024 (Version 2)
Quarter: 2013Q4

REPORT INFORMATION
  Report Type: Spontaneous
  Country: US (occurrence: US)
  Receive Date: 20131210
  Receipt Date: 20131210
  Transmission Date: 20140711
  Serious: Yes (Hospitalization)
  Sender: FDA-Public Use
  Company Number: US-TEVA-390233USA

PATIENT
  Age: 9 Month
  Sex: 0

DRUGS (1)
  1. BUDESONIDE [Suspect]

REACTIONS (1)
  - Pyrexia [Recovered/Resolved]
